FAERS Safety Report 15849533 (Version 3)
Quarter: 2019Q2

REPORT INFORMATION
  Report Type: Spontaneous
  Country: US (occurrence: US)
  Receive Date: 20190121
  Receipt Date: 20190612
  Transmission Date: 20190711
  Serious: Yes (Other)
  Sender: FDA-Public Use
  Company Number: US-ELI_LILLY_AND_COMPANY-US201901007581

PATIENT
  Age: 65 Year
  Sex: Male

DRUGS (2)
  1. EMGALITY [Suspect]
     Active Substance: GALCANEZUMAB-GNLM
     Indication: MIGRAINE WITHOUT AURA
     Dosage: 240 MG, SINGLE
     Route: 058
     Dates: start: 20181112
  2. EMGALITY [Suspect]
     Active Substance: GALCANEZUMAB-GNLM
     Dosage: 120 MG, MONTHLY (1/M)
     Route: 058

REACTIONS (6)
  - Fatigue [Unknown]
  - Chills [Recovered/Resolved]
  - Chest pain [Recovered/Resolved]
  - Thyroiditis subacute [Unknown]
  - Pyrexia [Recovered/Resolved]
  - Pericarditis [Recovered/Resolved]
